FAERS Safety Report 5078388-0 (Version None)
Quarter: 2006Q3

REPORT INFORMATION
  Report Type: 
  Country: None (occurrence: None)
  Receive Date: 20060811
  Receipt Date: 20060808
  Transmission Date: 20061208
  Serious: Yes (Hospitalization)
  Sender: FDA-Public Use
  Company Number: SE-GLAXOSMITHKLINE-B0433818A

PATIENT
  Age: 76 Year
  Sex: Male

DRUGS (11)
  1. VALTREX [Suspect]
     Indication: HERPES ZOSTER
     Dosage: 500MG PER DAY
     Route: 048
     Dates: start: 20060521, end: 20060524
  2. SIMVASTATIN [Concomitant]
  3. CITALOPRAM [Concomitant]
  4. FOLACIN [Concomitant]
     Route: 048
  5. ORALOVITE [Concomitant]
     Route: 048
  6. ETALPHA [Concomitant]
  7. METOPROLOL SUCCINATE [Concomitant]
     Route: 048
  8. ESSENTIAL AMINO ACIDS [Concomitant]
  9. CALCITUGG [Concomitant]
     Route: 048
  10. INSULIN [Concomitant]
  11. LOSEC MUPS [Concomitant]
     Route: 048

REACTIONS (3)
  - CONFUSIONAL STATE [None]
  - HALLUCINATION [None]
  - NIGHTMARE [None]
